FAERS Safety Report 5858821-4 (Version None)
Quarter: 2008Q3

REPORT INFORMATION
  Report Type: 
  Country: None (occurrence: None)
  Receive Date: 20080825
  Receipt Date: 20080813
  Transmission Date: 20090109
  Serious: Yes (Death, Hospitalization)
  Sender: FDA-Public Use
  Company Number: 2008AL009546

PATIENT
  Sex: Female

DRUGS (1)
  1. PHENYTOIN [Suspect]
     Dates: start: 20060601

REACTIONS (7)
  - ACUTE GENERALISED EXANTHEMATOUS PUSTULOSIS [None]
  - ANXIETY [None]
  - DERMATITIS BULLOUS [None]
  - EMOTIONAL DISTRESS [None]
  - ERYTHEMA MULTIFORME [None]
  - PAIN [None]
  - STEVENS-JOHNSON SYNDROME [None]
